FAERS Safety Report 19053099 (Version 1)
Quarter: 2021Q1

REPORT INFORMATION
  Report Type: Spontaneous
  Country: GB (occurrence: GB)
  Receive Date: 20210324
  Receipt Date: 20210324
  Transmission Date: 20210420
  Serious: Yes (Other)
  Sender: FDA-Public Use
  Company Number: GB-MYLANLABS-2021M1017543

PATIENT
  Age: 36 Year
  Sex: Female

DRUGS (6)
  1. DOXYCYCLINE. [Suspect]
     Active Substance: DOXYCYCLINE
     Indication: DERMATILLOMANIA
     Dosage: UNK
     Route: 065
  2. ACNECIDE [Suspect]
     Active Substance: BENZOYL PEROXIDE
     Indication: DERMATILLOMANIA
     Dosage: UNK
     Route: 061
  3. PERICIAZINE [Concomitant]
     Active Substance: PERICIAZINE
     Indication: PRODUCT USED FOR UNKNOWN INDICATION
     Dosage: UNK
     Route: 065
  4. RISPERIDONE. [Concomitant]
     Active Substance: RISPERIDONE
     Indication: PRODUCT USED FOR UNKNOWN INDICATION
     Dosage: UNK
     Route: 065
  5. ERYTHROMYCIN. [Suspect]
     Active Substance: ERYTHROMYCIN
     Indication: DERMATILLOMANIA
     Dosage: UNK
     Route: 065
  6. PROPRANOLOL [Concomitant]
     Active Substance: PROPRANOLOL HYDROCHLORIDE
     Indication: PRODUCT USED FOR UNKNOWN INDICATION
     Dosage: UNK
     Route: 065

REACTIONS (1)
  - Drug ineffective [Unknown]
